FAERS Safety Report 8392100-9 (Version None)
Quarter: 2012Q2

REPORT INFORMATION
  Report Type: 
  Country: None (occurrence: None)
  Receive Date: 20120529
  Receipt Date: 20120522
  Transmission Date: 20120825
  Serious: Yes (Hospitalization)
  Sender: FDA-Public Use
  Company Number: FR-ROCHE-1071513

PATIENT
  Sex: Male

DRUGS (11)
  1. MABTHERA [Suspect]
     Route: 042
     Dates: start: 20100506, end: 20100901
  2. DOXORUBICIN HCL [Suspect]
     Indication: LYMPHOMA
     Route: 042
     Dates: start: 20100506, end: 20100901
  3. CYCLOPHOSPHAMIDE [Suspect]
     Route: 048
     Dates: start: 20101116, end: 20120401
  4. VINCRISTINE SULFATE [Suspect]
     Indication: LYMPHOMA
     Route: 042
     Dates: start: 20100506, end: 20100901
  5. METHYLPREDNISOLONE [Suspect]
     Indication: LYMPHOMA
     Route: 042
  6. MABTHERA [Suspect]
     Route: 042
     Dates: start: 20100101
  7. MABTHERA [Suspect]
     Route: 042
     Dates: start: 20080501, end: 20080601
  8. PREDNISOLONE [Suspect]
     Indication: LYMPHOMA
     Route: 048
     Dates: start: 20100507, end: 20100905
  9. MABTHERA [Suspect]
     Indication: LYMPHOMA
     Route: 042
     Dates: start: 20080101
  10. MABTHERA [Suspect]
     Route: 042
     Dates: start: 20111116, end: 20120401
  11. CYCLOPHOSPHAMIDE [Suspect]
     Indication: LYMPHOMA
     Route: 048
     Dates: start: 20100506, end: 20100901

REACTIONS (1)
  - MALIGNANT MELANOMA [None]
